FAERS Safety Report 13488149 (Version 1)
Quarter: 2017Q2

REPORT INFORMATION
  Report Type: Spontaneous
  Country: US (occurrence: US)
  Receive Date: 20170426
  Receipt Date: 20170426
  Transmission Date: 20170830
  Serious: No
  Sender: FDA-Public Use
  Company Number: US-ALKERMES INC.-ALK-2016-003027

PATIENT
  Age: 22 Year
  Sex: Male
  Weight: 79.37 kg

DRUGS (1)
  1. VIVITROL [Suspect]
     Active Substance: NALTREXONE
     Indication: DRUG USE DISORDER
     Dosage: 380 MG, QMO
     Route: 030
     Dates: start: 20161011

REACTIONS (12)
  - Withdrawal syndrome [Unknown]
  - Drug use disorder [Not Recovered/Not Resolved]
  - Cold sweat [Unknown]
  - Restlessness [Unknown]
  - Hyperhidrosis [Unknown]
  - Insomnia [Unknown]
  - Dehydration [Unknown]
  - Chills [Recovered/Resolved]
  - Blood pressure increased [Unknown]
  - Piloerection [Unknown]
  - Panic attack [Unknown]
  - Abdominal pain upper [Unknown]

NARRATIVE: CASE EVENT DATE: 20161011
